FAERS Safety Report 25140343 (Version 1)
Quarter: 2025Q1

REPORT INFORMATION
  Report Type: Report from Study
  Country: CA (occurrence: CA)
  Receive Date: 20250331
  Receipt Date: 20250331
  Transmission Date: 20250409
  Serious: Yes (Death, Hospitalization, Other)
  Sender: IPSEN BIOPHARMACEUTICALS, INC.
  Company Number: CA-IPSEN Group, Research and Development-2025-06767

PATIENT
  Sex: Male

DRUGS (14)
  1. LANREOTIDE ACETATE [Suspect]
     Active Substance: LANREOTIDE ACETATE
     Indication: Gastroenteropancreatic neuroendocrine tumour disease
     Dosage: DEEP SUBCUTANEOUS ROUTE
     Route: 058
     Dates: start: 20220225
  2. SANDOSTATIN [Concomitant]
     Active Substance: OCTREOTIDE ACETATE
  3. PERINDOPRIL ERBUMINE [Concomitant]
     Active Substance: PERINDOPRIL ERBUMINE
  4. BRINZOLAMIDE [Concomitant]
     Active Substance: BRINZOLAMIDE
  5. BISOPROLOL [Concomitant]
     Active Substance: BISOPROLOL
  6. XARELTO [Concomitant]
     Active Substance: RIVAROXABAN
  7. JAMP DUTASTERIDE [Concomitant]
  8. TIMOLOL MALEATE\TRAVOPROST [Concomitant]
     Active Substance: TIMOLOL MALEATE\TRAVOPROST
  9. TAMSULOSIN [Concomitant]
     Active Substance: TAMSULOSIN
  10. FUROSEMIDE [Concomitant]
     Active Substance: FUROSEMIDE
  11. REFRESH CELLUVISC [Concomitant]
     Active Substance: CARBOXYMETHYLCELLULOSE SODIUM
  12. VITAMIN B12 [Concomitant]
     Active Substance: CYANOCOBALAMIN
  13. CHOLECALCIFEROL [Concomitant]
     Active Substance: CHOLECALCIFEROL
  14. POTASSIUM [Concomitant]
     Active Substance: POTASSIUM

REACTIONS (3)
  - Death [Fatal]
  - Palliative care [Unknown]
  - Off label use [Unknown]
